FAERS Safety Report 22600681 (Version 1)
Quarter: 2023Q2

REPORT INFORMATION
  Report Type: Spontaneous
  Country: US (occurrence: None)
  Receive Date: 20230613
  Receipt Date: 20230613
  Transmission Date: 20230722
  Serious: No
  Sender: FDA-Public Use
  Company Number: None

PATIENT
  Sex: Female

DRUGS (14)
  1. LENALIDOMIDE [Suspect]
     Active Substance: LENALIDOMIDE
     Indication: Plasma cell myeloma
     Dosage: OTHER QUANTITY : 1 CAP;?FREQUENCY : DAILY;?
     Route: 048
     Dates: start: 202204
  2. ACYCLOVIR [Concomitant]
     Active Substance: ACYCLOVIR
  3. ASCORBIC ACID [Concomitant]
     Active Substance: ASCORBIC ACID
  4. BISOPROLOL [Concomitant]
  5. CACLIUM [Concomitant]
  6. GABAPENTIN [Concomitant]
  7. MULTIVITAMIN ADULTS [Concomitant]
  8. OXYCODONE [Concomitant]
  9. PROCHLORPERAZINE [Concomitant]
  10. PROLIA [Concomitant]
     Active Substance: DENOSUMAB
  11. ASPIRIN [Concomitant]
  12. MAGNESIUM [Concomitant]
     Active Substance: MAGNESIUM
  13. PROBIOTIC PEARLS [Concomitant]
  14. VITAMIN D3 [Concomitant]
     Active Substance: CHOLECALCIFEROL

REACTIONS (2)
  - Full blood count decreased [None]
  - Therapy interrupted [None]
